FAERS Safety Report 10345732 (Version 2)
Quarter: 2014Q3

REPORT INFORMATION
  Report Type: Spontaneous
  Country: KE (occurrence: KE)
  Receive Date: 20140728
  Receipt Date: 20140805
  Transmission Date: 20150326
  Serious: Yes (Death, Other)
  Sender: FDA-Public Use
  Company Number: KE-GLAXOSMITHKLINE-B1016418A

PATIENT
  Age: 70 Year
  Sex: Male
  Weight: 76 kg

DRUGS (6)
  1. ANTI-TUBERCULOSIS MEDICATION [Concomitant]
     Active Substance: UNSPECIFIED INGREDIENT
  2. FORMOTEROL FUMERATE [Concomitant]
  3. CLEXANE [Concomitant]
     Active Substance: ENOXAPARIN SODIUM
  4. VENTOLIN [Suspect]
     Active Substance: ALBUTEROL SULFATE
     Indication: RESPIRATORY DISTRESS
     Dosage: 200MCG PER DAY
     Route: 055
     Dates: start: 20140716, end: 20140716
  5. ANTI HYPERTENSIVE [Concomitant]
  6. SALBUTAMOL [Concomitant]
     Active Substance: ALBUTEROL

REACTIONS (7)
  - Respiratory tract congestion [Unknown]
  - Tachycardia [Recovering/Resolving]
  - Dyspnoea [Unknown]
  - Cardiac disorder [Unknown]
  - Wheezing [Not Recovered/Not Resolved]
  - Renal failure chronic [Fatal]
  - Malaise [Unknown]

NARRATIVE: CASE EVENT DATE: 20140716
